FAERS Safety Report 5321735-2 (Version None)
Quarter: 2007Q2

REPORT INFORMATION
  Report Type: 
  Country: None (occurrence: None)
  Receive Date: 20070510
  Receipt Date: 20070430
  Transmission Date: 20071010
  Serious: Yes (Life-Threatening, Hospitalization)
  Sender: FDA-Public Use
  Company Number: KR-PFIZER INC-2006019056

PATIENT
  Sex: Female
  Weight: 44 kg

DRUGS (13)
  1. SU-011,248 [Suspect]
     Indication: GASTROINTESTINAL STROMAL TUMOUR
     Route: 048
     Dates: start: 20051123, end: 20060201
  2. FUROSEMIDE [Concomitant]
     Dosage: TEXT:UNKNOWN-FREQ:UNKNOWN
     Route: 048
  3. CALCIUM POLYSTYRENE SULFONATE [Concomitant]
     Dosage: TEXT:UNKNOWN-FREQ:UNKNOWN
     Route: 048
  4. MORPHINE SULFATE [Concomitant]
     Route: 048
  5. LACTULOSE [Concomitant]
     Route: 048
  6. MAGNESIUM OXIDE [Concomitant]
     Route: 048
  7. PHENIRAMINE MALEATE [Concomitant]
     Route: 042
  8. METOCLOPRAMIDE HYDROCHLORIDE [Concomitant]
     Dosage: TEXT:UNKNOWN-FREQ:UNKNOWN
     Route: 030
  9. TRAMADOL HCL [Concomitant]
     Dosage: TEXT:UNKNOWN-FREQ:UNKNOWN
     Route: 042
  10. ALBUMIN (HUMAN) [Concomitant]
     Dosage: TEXT:UNKNOWN-FREQ:UNKNOWN
     Route: 042
  11. RABEPRAZOLE SODIUM [Concomitant]
     Route: 048
  12. DOMPERIDONE [Concomitant]
     Route: 048
  13. KETOPROFEN [Concomitant]
     Dosage: TEXT:UNKNOWN-FREQ:UNKNOWN
     Route: 065

REACTIONS (3)
  - ANOREXIA [None]
  - KETOACIDOSIS [None]
  - MENTAL DISORDER [None]
